FAERS Safety Report 25770327 (Version 5)
Quarter: 2025Q4

REPORT INFORMATION
  Report Type: Report from Study
  Country: US (occurrence: US)
  Receive Date: 20250908
  Receipt Date: 20251111
  Transmission Date: 20260117
  Serious: Yes (Death, Other)
  Sender: EMD SERONO INC
  Company Number: US-Merck Healthcare KGaA-2025044605

PATIENT
  Age: 80 Year
  Sex: Female

DRUGS (3)
  1. TEPMETKO [Suspect]
     Active Substance: TEPOTINIB HYDROCHLORIDE
     Indication: Lung neoplasm malignant
     Dates: start: 20250610
  2. TYLENOL [Concomitant]
     Active Substance: ACETAMINOPHEN
     Indication: Product used for unknown indication
  3. LASIX [Concomitant]
     Active Substance: FUROSEMIDE
     Indication: Oedema

REACTIONS (6)
  - Death [Fatal]
  - Scab [Unknown]
  - Precancerous condition [Unknown]
  - Blood potassium abnormal [Unknown]
  - Blood calcium abnormal [Unknown]
  - Dyspnoea [Unknown]

NARRATIVE: CASE EVENT DATE: 20250901
